FAERS Safety Report 9808767 (Version 3)
Quarter: 2014Q3

REPORT INFORMATION
  Report Type: Spontaneous
  Country: US (occurrence: US)
  Receive Date: 20140110
  Receipt Date: 20140904
  Transmission Date: 20150326
  Serious: Yes (Hospitalization, Other)
  Sender: FDA-Public Use
  Company Number: US-009507513-1401USA003357

PATIENT
  Sex: Female

DRUGS (1)
  1. NUVARING [Suspect]
     Active Substance: ETHINYL ESTRADIOL\ETONOGESTREL
     Indication: CONTRACEPTION
     Dosage: UNK
     Route: 067
     Dates: start: 20061028

REACTIONS (14)
  - Pulmonary embolism [Unknown]
  - Vitamin B12 deficiency [Unknown]
  - Hypothyroidism [Unknown]
  - Wrist surgery [Unknown]
  - Malabsorption [Unknown]
  - Pleuritic pain [Recovered/Resolved]
  - Loop electrosurgical excision procedure [Unknown]
  - Bunion operation [Unknown]
  - Diarrhoea [Unknown]
  - Deep vein thrombosis [Unknown]
  - Meniscus operation [Unknown]
  - Ligament rupture [Not Recovered/Not Resolved]
  - Tibia fracture [Unknown]
  - Anxiety [Unknown]

NARRATIVE: CASE EVENT DATE: 201208
